FAERS Safety Report 16568713 (Version 1)
Quarter: 2019Q3

REPORT INFORMATION
  Report Type: Spontaneous
  Country: DE (occurrence: DE)
  Receive Date: 20190713
  Receipt Date: 20190713
  Transmission Date: 20191004
  Serious: Yes (Hospitalization)
  Sender: FDA-Public Use
  Company Number: DE-JNJFOC-20190709543

PATIENT
  Age: 28 Year
  Sex: Female

DRUGS (3)
  1. IBEROGAST N [Concomitant]
     Active Substance: HERBALS
     Indication: PRODUCT USED FOR UNKNOWN INDICATION
     Dosage: NK MG, 3X/D (3 TIME PER DAY)?REPORTED GENERIC NAME: ANGELICA ARCHANGELICA ROOT/ CHELIDONIUM MAJUS HE
     Route: 065
  2. THOMAPYRIN [Concomitant]
     Indication: PRODUCT USED FOR UNKNOWN INDICATION
     Dosage: NK MG, REQUIREMENT?GENERIC NAME: ACETYLSALICYLIC ACID/ PARACETAMOL
     Route: 065
  3. CETIRIZINE HYDROCHLORIDE. [Suspect]
     Active Substance: CETIRIZINE HYDROCHLORIDE
     Indication: PRODUCT USED FOR UNKNOWN INDICATION
     Dosage: 10 MG, 1-0-0-0
     Route: 065

REACTIONS (2)
  - Tachycardia [Unknown]
  - Palpitations [Unknown]
